FAERS Safety Report 7508217-4 (Version None)
Quarter: 2011Q2

REPORT INFORMATION
  Report Type: 
  Country: None (occurrence: None)
  Receive Date: 20110421
  Receipt Date: 20110414
  Transmission Date: 20111010
  Serious: Yes (Disabling)
  Sender: FDA-Public Use
  Company Number: ALL1-2010-02639

PATIENT
  Age: 19 Year
  Sex: Male
  Weight: 63.5 kg

DRUGS (3)
  1. VYVANSE [Suspect]
     Indication: ATTENTION DEFICIT/HYPERACTIVITY DISORDER
     Dosage: 40 MG, ORAL, 40 MG, OTHER (THREE DAYS A WEEK), ORAL, 40 MG, 1X/DAY; QD, ORAL
     Route: 048
     Dates: start: 20100101, end: 20100401
  2. VYVANSE [Suspect]
     Indication: ATTENTION DEFICIT/HYPERACTIVITY DISORDER
     Dosage: 40 MG, ORAL, 40 MG, OTHER (THREE DAYS A WEEK), ORAL, 40 MG, 1X/DAY; QD, ORAL
     Route: 048
     Dates: start: 20100401, end: 20100501
  3. VYVANSE [Suspect]
     Indication: ATTENTION DEFICIT/HYPERACTIVITY DISORDER
     Dosage: 40 MG, ORAL, 40 MG, OTHER (THREE DAYS A WEEK), ORAL, 40 MG, 1X/DAY; QD, ORAL
     Route: 048
     Dates: start: 20090101, end: 20100101

REACTIONS (1)
  - EMOTIONAL DISTRESS [None]
